FAERS Safety Report 18056223 (Version 1)
Quarter: 2020Q3

REPORT INFORMATION
  Report Type: Spontaneous
  Country: US (occurrence: US)
  Receive Date: 20200722
  Receipt Date: 20200722
  Transmission Date: 20201103
  Serious: Yes (Death, Life-Threatening)
  Sender: FDA-Public Use
  Company Number: US-CELGENEUS-USA-20200704747

PATIENT
  Sex: Male

DRUGS (2)
  1. ABRAXANE [Suspect]
     Active Substance: PACLITAXEL
     Indication: ADENOCARCINOMA PANCREAS
     Dosage: 5.9524 MILLIGRAM/SQ. METER
     Route: 041
     Dates: start: 20191120, end: 20200226
  2. GEMCITABINE. [Suspect]
     Active Substance: GEMCITABINE
     Indication: ADENOCARCINOMA PANCREAS
     Dosage: 47.619 MILLIGRAM/SQ. METER
     Route: 041
     Dates: start: 20191120, end: 20200226

REACTIONS (2)
  - Cerebrovascular accident [Fatal]
  - Embolism [Fatal]
